APPROVED DRUG PRODUCT: DEFERASIROX
Active Ingredient: DEFERASIROX
Strength: 360MG
Dosage Form/Route: GRANULE;ORAL
Application: A216229 | Product #002 | TE Code: AB
Applicant: ANNORA PHARMA PRIVATE LTD
Approved: Sep 22, 2022 | RLD: No | RS: No | Type: RX